FAERS Safety Report 4647309-4 (Version None)
Quarter: 2005Q2

REPORT INFORMATION
  Report Type: 
  Country: None (occurrence: None)
  Receive Date: 20050426
  Receipt Date: 20050410
  Transmission Date: 20051028
  Serious: Yes (Other)
  Sender: FDA-Public Use
  Company Number: 213963

PATIENT
  Age: 62 Year
  Sex: Male
  Weight: 100 kg

DRUGS (4)
  1. AVASTIN [Suspect]
     Indication: BLADDER CANCER
     Dosage: 500 MG, Q2W, INTRAVENOUS
     Route: 042
     Dates: start: 20040415, end: 20050315
  2. IRESSA (FEFITINIB) [Concomitant]
  3. WARFARIN SODIUM [Concomitant]
  4. CELEBRA (CELECOXIB) [Concomitant]

REACTIONS (1)
  - CYSTITIS HAEMORRHAGIC [None]
